FAERS Safety Report 11344991 (Version 1)
Quarter: 2015Q3

REPORT INFORMATION
  Report Type: Spontaneous
  Country: IT (occurrence: IT)
  Receive Date: 20150806
  Receipt Date: 20150806
  Transmission Date: 20151125
  Serious: Yes (Other)
  Sender: FDA-Public Use
  Company Number: IT-AMGEN-ITASP2015077971

PATIENT
  Age: 52 Year
  Sex: Female
  Weight: 70 kg

DRUGS (4)
  1. PERTUZUMAB [Concomitant]
     Active Substance: PERTUZUMAB
     Indication: BREAST NEOPLASM
     Dosage: 420 MG, UNK
     Route: 042
     Dates: start: 20141112, end: 20150727
  2. TRASTUZUMAB [Concomitant]
     Active Substance: TRASTUZUMAB
     Indication: BREAST NEOPLASM
     Dosage: 420 MG, UNK
     Route: 042
     Dates: start: 20141112, end: 20150727
  3. LETROZOLE. [Concomitant]
     Active Substance: LETROZOLE
     Indication: BREAST NEOPLASM
     Dosage: 2.5 MG, UNK
     Route: 048
     Dates: start: 20141112, end: 20150727
  4. XGEVA [Suspect]
     Active Substance: DENOSUMAB
     Indication: METASTASES TO BONE
     Dosage: 120 MG, QMO
     Route: 042
     Dates: start: 20141117

REACTIONS (1)
  - Femur fracture [Recovered/Resolved with Sequelae]

NARRATIVE: CASE EVENT DATE: 20150603
